FAERS Safety Report 8789611 (Version 1)
Quarter: 2012Q4

REPORT INFORMATION
  Report Type: Spontaneous
  Country: US (occurrence: None)
  Receive Date: 20120910
  Receipt Date: 20120910
  Transmission Date: 20130627
  Serious: No
  Sender: FDA-Public Use
  Company Number: None

PATIENT
  Sex: Male

DRUGS (1)
  1. TEGRETOL XR [Suspect]
     Indication: TRIGEMINAL NEURALGIA
     Dates: start: 20120730, end: 20120802

REACTIONS (1)
  - Muscle spasms [None]
